FAERS Safety Report 4400826-4 (Version None)
Quarter: 2004Q3

REPORT INFORMATION
  Report Type: 
  Country: None (occurrence: None)
  Receive Date: 20040907
  Receipt Date: 20030625
  Transmission Date: 20050211
  Serious: No
  Sender: FDA-Public Use
  Company Number: US-BRISTOL-MYERS SQUIBB COMPANY-12310181

PATIENT
  Sex: Female
  Weight: 45 kg

DRUGS (9)
  1. COUMADIN [Suspect]
     Indication: ATRIAL FIBRILLATION
     Dosage: DOSAGE VARIES
     Route: 048
  2. ATENOLOL [Concomitant]
  3. LEVOXYL [Concomitant]
  4. VALIUM [Concomitant]
  5. HYDROCHLOROTHIAZIDE [Concomitant]
     Dosage: ^WITH SOMETHING ELSE^
  6. IMODIUM [Concomitant]
  7. LOMOTIL [Concomitant]
  8. CALCIUM+MAGNESIUM+VITAMIN D [Concomitant]
  9. VITAMIN C [Concomitant]

REACTIONS (3)
  - DECREASED APPETITE [None]
  - INTERNATIONAL NORMALISED RATIO ABNORMAL [None]
  - WEIGHT DECREASED [None]
